FAERS Safety Report 22322982 (Version 1)
Quarter: 2023Q2

REPORT INFORMATION
  Report Type: Spontaneous
  Country: US (occurrence: None)
  Receive Date: 20230516
  Receipt Date: 20230516
  Transmission Date: 20230722
  Serious: No
  Sender: FDA-Public Use
  Company Number: US-Axsome Therapeutics, Inc.-AXS202301-000028

PATIENT
  Sex: Male

DRUGS (7)
  1. SUNOSI [Suspect]
     Active Substance: SOLRIAMFETOL
     Indication: Product used for unknown indication
     Dosage: UNK
     Route: 048
     Dates: end: 202212
  2. TESTOSTERONE [Concomitant]
     Active Substance: TESTOSTERONE
     Dosage: UNK
     Dates: start: 20220901
  3. FC CIDAL SUPPLEMENT [Concomitant]
     Dosage: UNK
     Dates: start: 20221101
  4. ST. JOHN^S WORT [Concomitant]
     Active Substance: ST. JOHN^S WORT
     Route: 048
     Dates: start: 20221101
  5. ZMA [Concomitant]
     Dosage: UNK
     Dates: start: 20221101
  6. VENLAFAXINE HCL [Concomitant]
     Active Substance: VENLAFAXINE HYDROCHLORIDE
     Route: 048
     Dates: start: 20230104
  7. DYBIOCIDE [Concomitant]
     Dosage: UNK
     Dates: start: 20221101

REACTIONS (2)
  - Anxiety [Unknown]
  - Drug ineffective [Unknown]
